FAERS Safety Report 16805197 (Version 5)
Quarter: 2024Q2

REPORT INFORMATION
  Report Type: Report from Study
  Country: CR (occurrence: CR)
  Receive Date: 20190913
  Receipt Date: 20240501
  Transmission Date: 20240716
  Serious: Yes (Hospitalization, Other)
  Sender: FDA-Public Use
  Company Number: PHHY2019CR212636

PATIENT
  Age: 56 Year
  Sex: Female
  Weight: 54 kg

DRUGS (5)
  1. SECUKINUMAB [Suspect]
     Active Substance: SECUKINUMAB
     Indication: Ankylosing spondylitis
     Dosage: 150 MG, QMO
     Route: 058
     Dates: start: 20190514, end: 202110
  2. SECUKINUMAB [Suspect]
     Active Substance: SECUKINUMAB
     Dosage: 300 MG
     Route: 058
     Dates: start: 202110
  3. ATENOLOL [Concomitant]
     Active Substance: ATENOLOL
     Indication: Product used for unknown indication
     Dosage: 50 MG, QD (AT NIGHT)
     Route: 065
  4. IMIPRAMINE [Concomitant]
     Active Substance: IMIPRAMINE
     Indication: Product used for unknown indication
     Dosage: 40 MG, QD (AT NIGHT)
     Route: 065
  5. SULFASALAZINE [Concomitant]
     Active Substance: SULFASALAZINE
     Indication: Product used for unknown indication
     Dosage: 1 DOSAGE FORM, BID (ONE IN THE MORNING AND ANOTHER IN THE NIGHT)
     Route: 065

REACTIONS (14)
  - Nephrolithiasis [Unknown]
  - Renal injury [Unknown]
  - Diarrhoea [Unknown]
  - Back pain [Recovering/Resolving]
  - Neck pain [Recovering/Resolving]
  - Hypertension [Unknown]
  - Gastrointestinal pain [Unknown]
  - Gastritis [Unknown]
  - Abdominal pain upper [Unknown]
  - Catheter site pain [Unknown]
  - Pollakiuria [Unknown]
  - Chills [Unknown]
  - Blood urine present [Unknown]
  - Drug intolerance [Unknown]

NARRATIVE: CASE EVENT DATE: 20230618
